FAERS Safety Report 4394619-4 (Version None)
Quarter: 2004Q3

REPORT INFORMATION
  Report Type: 
  Country: None (occurrence: None)
  Receive Date: 20040706
  Receipt Date: 20040621
  Transmission Date: 20050211
  Serious: Yes (Life-Threatening, Other)
  Sender: FDA-Public Use
  Company Number: 2004041837

PATIENT
  Sex: Female
  Weight: 58.9676 kg

DRUGS (2)
  1. DILANTIN [Suspect]
     Indication: CONVULSION
  2. NEURONTIN [Suspect]
     Dosage: 1200 MG (400  MG, 3 IN 1 D)
     Dates: start: 19950101

REACTIONS (8)
  - ANTICONVULSANT DRUG LEVEL INCREASED [None]
  - DEPRESSED LEVEL OF CONSCIOUSNESS [None]
  - FEELING ABNORMAL [None]
  - HEADACHE [None]
  - ILL-DEFINED DISORDER [None]
  - LETHARGY [None]
  - PAIN [None]
  - PLATELET COUNT DECREASED [None]
